FAERS Safety Report 5077856-5 (Version None)
Quarter: 2006Q3

REPORT INFORMATION
  Report Type: 
  Country: None (occurrence: None)
  Receive Date: 20060720
  Receipt Date: 20051116
  Transmission Date: 20061208
  Serious: Yes (Hospitalization)
  Sender: FDA-Public Use
  Company Number: 05USA0246

PATIENT
  Age: 67 Year
  Sex: Male

DRUGS (3)
  1. AGGRASTAT [Suspect]
     Indication: ANGINA UNSTABLE
     Dates: start: 20051109, end: 20051109
  2. PLAVIX [Concomitant]
  3. ^CLEXAR^ (HEPARIN-FRACTION, SODIUM SALT) [Concomitant]

REACTIONS (1)
  - GASTROINTESTINAL HAEMORRHAGE [None]
